FAERS Safety Report 5084901-X (Version None)
Quarter: 2006Q3

REPORT INFORMATION
  Report Type: 
  Country: None (occurrence: None)
  Receive Date: 20060815
  Receipt Date: 20060731
  Transmission Date: 20061208
  Serious: Yes (Hospitalization, Other)
  Sender: FDA-Public Use
  Company Number: 2006AL002089

PATIENT
  Age: 69 Year
  Sex: Female

DRUGS (8)
  1. DICLOFENAC [Suspect]
     Indication: BONE PAIN
     Dosage: 75 MG; BID; PO
     Route: 048
     Dates: end: 20060325
  2. GABAPENTIN [Concomitant]
  3. ZOPICLONE [Concomitant]
  4. AMILORIDE [Concomitant]
  5. FLECAINIDE ACETATE [Concomitant]
  6. CITALOPRAM [Concomitant]
  7. FENTANYL [Concomitant]
  8. DEXAMETHASONE [Concomitant]

REACTIONS (3)
  - ABDOMINAL PAIN [None]
  - HAEMATEMESIS [None]
  - MELAENA [None]
